FAERS Safety Report 5893474-0 (Version None)
Quarter: 2008Q3

REPORT INFORMATION
  Report Type: 
  Country: None (occurrence: None)
  Receive Date: 20080919
  Receipt Date: 20080908
  Transmission Date: 20090109
  Serious: Yes (Hospitalization)
  Sender: FDA-Public Use
  Company Number: 2008-03310

PATIENT
  Age: 60 Year
  Sex: Female
  Weight: 60 kg

DRUGS (3)
  1. VELCADE [Suspect]
     Indication: B-CELL LYMPHOMA
     Dosage: UNK, UNK, UNKNOWN, UNK, UNK, UNKNOWN
     Dates: start: 20080128, end: 20080619
  2. VELCADE [Suspect]
     Indication: B-CELL LYMPHOMA
     Dosage: UNK, UNK, UNKNOWN, UNK, UNK, UNKNOWN
     Dates: end: 20080619
  3. PRISTINAMYCIN (PRISTINAMYCIN) [Concomitant]

REACTIONS (2)
  - CELLULITIS [None]
  - ESCHERICHIA INFECTION [None]
